FAERS Safety Report 9868802 (Version 1)
Quarter: 2014Q1

REPORT INFORMATION
  Report Type: Spontaneous
  Country: US (occurrence: US)
  Receive Date: 20140204
  Receipt Date: 20140204
  Transmission Date: 20141002
  Serious: No
  Sender: FDA-Public Use
  Company Number: US-009507513-1402USA001471

PATIENT
  Age: 29 Year
  Sex: Female

DRUGS (4)
  1. CLARITIN-D-12 [Suspect]
     Indication: SINUS DISORDER
     Dosage: UNK, UNKNOWN
     Route: 048
  2. CLARITIN-D-12 [Suspect]
     Indication: SEASONAL ALLERGY
  3. CLARITIN-D-12 [Suspect]
     Indication: RESPIRATORY TRACT CONGESTION
  4. CLARITIN-D-12 [Suspect]
     Indication: NASOPHARYNGITIS

REACTIONS (2)
  - Drug effect delayed [Unknown]
  - Drug effect decreased [Unknown]
